FAERS Safety Report 11032051 (Version 1)
Quarter: 2015Q2

REPORT INFORMATION
  Report Type: Spontaneous
  Country: US (occurrence: None)
  Receive Date: 20150414
  Receipt Date: 20150414
  Transmission Date: 20150821
  Serious: Yes (Other)
  Sender: FDA-Public Use
  Company Number: 2014TASUS000633

PATIENT
  Age: 64 Year
  Sex: Female

DRUGS (4)
  1. INDERAL [Concomitant]
     Active Substance: PROPRANOLOL HYDROCHLORIDE
  2. METFORMIN [Concomitant]
     Active Substance: METFORMIN HYDROCHLORIDE
  3. ENABLEX (DARIFENACIN HYDROBROMIDE) [Concomitant]
  4. HETLIOZ [Suspect]
     Active Substance: TASIMELTEON
     Indication: CIRCADIAN RHYTHM SLEEP DISORDER
     Route: 048
     Dates: start: 2014

REACTIONS (3)
  - Abnormal dreams [None]
  - Suicidal ideation [None]
  - Nightmare [None]

NARRATIVE: CASE EVENT DATE: 20141216
